FAERS Safety Report 7230355-4 (Version None)
Quarter: 2011Q1

REPORT INFORMATION
  Report Type: 
  Country: None (occurrence: None)
  Receive Date: 20110118
  Receipt Date: 20110114
  Transmission Date: 20110831
  Serious: Yes (Hospitalization, Other)
  Sender: FDA-Public Use
  Company Number: JP-PFIZER INC-2011002070

PATIENT
  Age: 48 Year
  Sex: Male

DRUGS (7)
  1. RISPERIDONE [Concomitant]
     Indication: SCHIZOPHRENIA
  2. ZOTEPINE [Concomitant]
     Indication: SCHIZOPHRENIA
  3. NITRAZEPAM [Concomitant]
     Indication: SCHIZOPHRENIA
  4. VALPROATE SODIUM [Concomitant]
     Indication: SCHIZOPHRENIA
  5. HALCION [Suspect]
     Indication: SCHIZOPHRENIA
  6. FLUNITRAZEPAM [Concomitant]
     Indication: SCHIZOPHRENIA
  7. PHENOBARBITAL [Concomitant]
     Indication: SCHIZOPHRENIA

REACTIONS (1)
  - NEUROLEPTIC MALIGNANT SYNDROME [None]
